FAERS Safety Report 7670328-0 (Version None)
Quarter: 2011Q3

REPORT INFORMATION
  Report Type: 
  Country: None (occurrence: None)
  Receive Date: 20110809
  Receipt Date: 20110802
  Transmission Date: 20111222
  Serious: No
  Sender: FDA-Public Use
  Company Number: US-BIOGENIDEC-2010BI042333

PATIENT
  Sex: Female

DRUGS (1)
  1. TYSABRI [Suspect]
     Indication: MULTIPLE SCLEROSIS
     Route: 042
     Dates: start: 20101119

REACTIONS (9)
  - FATIGUE [None]
  - DYSMENORRHOEA [None]
  - PAIN IN EXTREMITY [None]
  - DIZZINESS [None]
  - METRORRHAGIA [None]
  - ABDOMINAL DISCOMFORT [None]
  - MUSCULAR WEAKNESS [None]
  - DEPRESSION [None]
  - GAIT DISTURBANCE [None]
